FAERS Safety Report 22587464 (Version 1)
Quarter: 2023Q2

REPORT INFORMATION
  Report Type: Spontaneous
  Country: AU (occurrence: AU)
  Receive Date: 20230612
  Receipt Date: 20230612
  Transmission Date: 20230722
  Serious: Yes (Other)
  Sender: FDA-Public Use
  Company Number: AU-AMGEN-AUSSP2023098895

PATIENT
  Age: 84 Year
  Sex: Female

DRUGS (1)
  1. PROLIA [Suspect]
     Active Substance: DENOSUMAB
     Indication: Spinal fracture
     Dosage: UNK UNK, Q6MO
     Route: 065
     Dates: start: 202209

REACTIONS (2)
  - Pelvic fracture [Unknown]
  - Spinal fracture [Unknown]
